FAERS Safety Report 9474117 (Version 1)
Quarter: 2013Q3

REPORT INFORMATION
  Report Type: Spontaneous
  Country: US (occurrence: None)
  Receive Date: 20130820
  Receipt Date: 20130820
  Transmission Date: 20140515
  Serious: Yes (Hospitalization)
  Sender: FDA-Public Use
  Company Number: B0915723A

PATIENT
  Age: 24 Month
  Sex: Male
  Weight: 29.7 kg

DRUGS (1)
  1. LAMOTRIGINE [Suspect]
     Indication: CONVULSION
     Route: 048

REACTIONS (6)
  - Agitation [None]
  - Crying [None]
  - Toxicity to various agents [None]
  - Myoclonus [None]
  - Hypotonia [None]
  - Accidental exposure to product by child [None]
